FAERS Safety Report 8292404-4 (Version None)
Quarter: 2012Q2

REPORT INFORMATION
  Report Type: 
  Country: None (occurrence: None)
  Receive Date: 20120417
  Receipt Date: 20120413
  Transmission Date: 20120825
  Serious: Yes (Other)
  Sender: FDA-Public Use
  Company Number: US-PFIZER INC-2012048349

PATIENT

DRUGS (7)
  1. DAYPRO [Suspect]
     Dosage: 600 MG, 1X/DAY (PO Q DAY)
     Route: 048
  2. NAMENDA [Concomitant]
     Dosage: UNK
  3. TAPENTADOL [Concomitant]
     Dosage: UNK
  4. CRESTOR [Concomitant]
     Dosage: UNK
  5. ACCUPRIL [Suspect]
     Dosage: 20 MG, 2X/DAY  (PO BID)
     Route: 048
  6. CELEBREX [Suspect]
     Dosage: 200 MG, (ONE TABLET PO Q DAY PRN)
     Route: 048
  7. CATAPRES [Concomitant]
     Dosage: UNK

REACTIONS (3)
  - NEPHROLITHIASIS [None]
  - INTERVERTEBRAL DISC PROTRUSION [None]
  - MALAISE [None]
